FAERS Safety Report 12247636 (Version 1)
Quarter: 2016Q2

REPORT INFORMATION
  Report Type: Spontaneous
  Country: FR (occurrence: FR)
  Receive Date: 20160408
  Receipt Date: 20160408
  Transmission Date: 20160815
  Serious: Yes (Hospitalization)
  Sender: FDA-Public Use
  Company Number: FR-ROCHE-1737492

PATIENT
  Age: 49 Year
  Sex: Male
  Weight: 84.7 kg

DRUGS (26)
  1. TAHOR [Concomitant]
     Active Substance: ATORVASTATIN CALCIUM
     Route: 048
  2. ETOPOSIDE. [Concomitant]
     Active Substance: ETOPOSIDE
     Route: 042
     Dates: start: 201511
  3. CYCLOPHOSPHAMIDE. [Concomitant]
     Active Substance: CYCLOPHOSPHAMIDE
     Route: 065
     Dates: start: 201411, end: 201501
  4. ZELITREX [Suspect]
     Active Substance: VALACYCLOVIR HYDROCHLORIDE
     Indication: PRODUCT USED FOR UNKNOWN INDICATION
     Route: 048
  5. CYTARABINE SANDOZ [Concomitant]
     Active Substance: CYTARABINE
     Route: 042
     Dates: start: 201511
  6. CELLCEPT [Suspect]
     Active Substance: MYCOPHENOLATE MOFETIL\MYCOPHENOLATE MOFETIL HYDROCHLORIDE
     Indication: PROPHYLAXIS AGAINST TRANSPLANT REJECTION
     Route: 048
     Dates: start: 2005
  7. LEDERFOLINE [Concomitant]
     Active Substance: LEUCOVORIN CALCIUM
     Route: 048
  8. MELPHALAN [Concomitant]
     Active Substance: MELPHALAN
     Route: 065
     Dates: start: 201511
  9. ALKERAN [Concomitant]
     Active Substance: MELPHALAN
     Route: 042
     Dates: start: 201511
  10. VINCRISTINE [Concomitant]
     Active Substance: VINCRISTINE
     Route: 065
     Dates: start: 201411, end: 201501
  11. SELOKEEN [Concomitant]
     Active Substance: METOPROLOL
     Route: 048
  12. INNOHEP [Concomitant]
     Active Substance: TINZAPARIN SODIUM
     Route: 058
  13. UVEDOSE [Concomitant]
     Active Substance: CHOLECALCIFEROL
     Route: 048
  14. DUOTRAV [Concomitant]
     Active Substance: TIMOLOL MALEATE\TRAVOPROST
     Route: 047
  15. BENDAMUSTINE [Concomitant]
     Active Substance: BENDAMUSTINE
     Route: 065
     Dates: start: 201511
  16. BACTRIM [Suspect]
     Active Substance: SULFAMETHOXAZOLE\TRIMETHOPRIM
     Indication: OPPORTUNISTIC INFECTION PROPHYLAXIS
     Route: 048
     Dates: start: 201511, end: 20160304
  17. KETODERM (FRANCE) [Concomitant]
     Route: 003
  18. FLECAINE LP [Concomitant]
     Active Substance: FLECAINIDE
     Route: 048
  19. CORTANCYL [Concomitant]
     Active Substance: PREDNISONE
     Route: 048
  20. PREDNISOLONE. [Concomitant]
     Active Substance: PREDNISOLONE
     Route: 065
     Dates: start: 201411, end: 201501
  21. OXALIPLATIN HOSPIRA [Concomitant]
     Active Substance: OXALIPLATIN
     Route: 042
     Dates: start: 201510
  22. LEVACT (FRANCE) [Concomitant]
     Active Substance: BENDAMUSTINE HYDROCHLORIDE
     Route: 065
     Dates: start: 201511
  23. DEXAMETHASONE. [Concomitant]
     Active Substance: DEXAMETHASONE
     Route: 065
     Dates: start: 201510
  24. CYTARABINE SANDOZ [Concomitant]
     Active Substance: CYTARABINE
     Dosage: 4 240 MG
     Route: 042
     Dates: start: 201510
  25. MABTHERA [Suspect]
     Active Substance: RITUXIMAB
     Indication: LYMPHOMA
     Route: 042
     Dates: start: 20151007, end: 201511
  26. DOXORUBICIN [Concomitant]
     Active Substance: DOXORUBICIN
     Route: 065
     Dates: start: 201411, end: 201501

REACTIONS (1)
  - Agranulocytosis [Recovered/Resolved]

NARRATIVE: CASE EVENT DATE: 20160304
